FAERS Safety Report 20936763 (Version 1)
Quarter: 2022Q2

REPORT INFORMATION
  Report Type: Report from Study
  Country: AU (occurrence: AU)
  Receive Date: 20220609
  Receipt Date: 20220609
  Transmission Date: 20220721
  Serious: Yes (Death, Other)
  Sender: FDA-Public Use
  Company Number: AU-SUN PHARMACEUTICAL INDUSTRIES LTD-2022RR-340106

PATIENT
  Age: 45 Year
  Sex: Female

DRUGS (3)
  1. MORPHINE [Suspect]
     Active Substance: MORPHINE
     Indication: Pain
     Dosage: 45 MILLIGRAM, 1DOSE/1HOUR
     Route: 058
  2. MORPHINE [Suspect]
     Active Substance: MORPHINE
     Dosage: 496 MILLIGRAM, UNK
     Route: 058
  3. FENTANYL [Suspect]
     Active Substance: FENTANYL
     Indication: Pain
     Dosage: 50 MICROGRAM ONCE ONLY
     Route: 065

REACTIONS (1)
  - Toxicity to various agents [Fatal]
